FAERS Safety Report 25200892 (Version 1)
Quarter: 2025Q2

REPORT INFORMATION
  Report Type: Spontaneous
  Country: IN (occurrence: IN)
  Receive Date: 20250415
  Receipt Date: 20250415
  Transmission Date: 20250717
  Serious: Yes (Other)
  Sender: AMGEN
  Company Number: IN-KYOWAKIRIN-2025KK006744

PATIENT

DRUGS (2)
  1. DARBEPOETIN ALFA [Suspect]
     Active Substance: DARBEPOETIN ALFA
     Indication: Nephrogenic anaemia
     Dosage: 4000 UNIT SUBCUTANEOUSLY TWICE WEEKLY
     Route: 058
  2. EPOETIN ALFA [Suspect]
     Active Substance: ERYTHROPOIETIN
     Indication: Nephrogenic anaemia
     Dosage: 4000 UNIT SUBCUTANEOUSLY TWICE WEEKLY
     Route: 058

REACTIONS (1)
  - Aplasia pure red cell [Unknown]
